FAERS Safety Report 9748730 (Version 3)
Quarter: 2013Q4

REPORT INFORMATION
  Report Type: Report from Study
  Country: TR (occurrence: TR)
  Receive Date: 20131212
  Receipt Date: 20131224
  Transmission Date: 20140711
  Serious: Yes (Death, Other)
  Sender: FDA-Public Use
  Company Number: PHHY2013TR130942

PATIENT
  Age: 16 Year
  Sex: Male
  Weight: 66.5 kg

DRUGS (1)
  1. EXJADE [Suspect]
     Indication: THALASSAEMIA BETA
     Dosage: 1250 MG, DAILY
     Route: 048
     Dates: start: 201204

REACTIONS (4)
  - Graft versus host disease [Fatal]
  - Aplasia pure red cell [Unknown]
  - Skin disorder [Recovered/Resolved]
  - Gastrointestinal disorder [Not Recovered/Not Resolved]
